FAERS Safety Report 16844378 (Version 1)
Quarter: 2019Q3

REPORT INFORMATION
  Report Type: Report from Study
  Country: CA (occurrence: CA)
  Receive Date: 20190924
  Receipt Date: 20190924
  Transmission Date: 20191005
  Serious: Yes (Other)
  Sender: FDA-Public Use
  Company Number: CA-ORION CORPORATION ORION PHARMA-TREX2019-3584

PATIENT
  Age: 47 Year
  Sex: Female

DRUGS (6)
  1. METHOTREXATE (TRADE NAME UNKNOWN) [Suspect]
     Active Substance: METHOTREXATE
     Indication: PRODUCT USED FOR UNKNOWN INDICATION
     Route: 065
  2. NEORAL [Suspect]
     Active Substance: CYCLOSPORINE
     Indication: PSORIASIS
     Route: 048
  3. DOVONEX [Concomitant]
     Active Substance: CALCIPOTRIENE
     Route: 065
  4. CLOBEX [Concomitant]
     Active Substance: CLOBETASOL PROPIONATE
     Indication: PSORIASIS
     Route: 065
  5. COSENTYX [Suspect]
     Active Substance: SECUKINUMAB
     Route: 058
  6. COSENTYX [Suspect]
     Active Substance: SECUKINUMAB
     Indication: PSORIASIS
     Route: 058

REACTIONS (9)
  - Poor quality sleep [Recovered/Resolved]
  - Skin burning sensation [Recovered/Resolved]
  - Skin fissures [Recovered/Resolved]
  - Psoriasis [Recovered/Resolved]
  - Skin haemorrhage [Recovered/Resolved]
  - Incorrect dose administered [Recovered/Resolved]
  - Accidental exposure to product [Recovered/Resolved]
  - Blood creatinine increased [Recovered/Resolved]
  - Skin irritation [Recovered/Resolved]
